FAERS Safety Report 13477036 (Version 1)
Quarter: 2017Q2

REPORT INFORMATION
  Report Type: Spontaneous
  Country: US (occurrence: US)
  Receive Date: 20170424
  Receipt Date: 20170424
  Transmission Date: 20170830
  Serious: Yes (Hospitalization)
  Sender: FDA-Public Use
  Company Number: None

PATIENT
  Age: 61 Year
  Sex: Female

DRUGS (7)
  1. TARCEVA [Suspect]
     Active Substance: ERLOTINIB HYDROCHLORIDE
     Indication: BRONCHIAL NEOPLASM
     Route: 048
     Dates: start: 20170414, end: 20170424
  2. ASA [Concomitant]
     Active Substance: ASPIRIN
  3. LASIX [Concomitant]
     Active Substance: FUROSEMIDE
  4. POTASSIUM [Concomitant]
     Active Substance: POTASSIUM
  5. METOPROLOL. [Concomitant]
     Active Substance: METOPROLOL
  6. CODEIN [Concomitant]
     Active Substance: CODEINE
  7. DILTIAZEM. [Concomitant]
     Active Substance: DILTIAZEM

REACTIONS (4)
  - Rash pustular [None]
  - Diarrhoea [None]
  - Pulmonary oedema [None]
  - Abdominal pain upper [None]

NARRATIVE: CASE EVENT DATE: 20170415
